FAERS Safety Report 7565916-6 (Version None)
Quarter: 2011Q2

REPORT INFORMATION
  Report Type: 
  Country: None (occurrence: None)
  Receive Date: 20110623
  Receipt Date: 20110621
  Transmission Date: 20111010
  Serious: No
  Sender: FDA-Public Use
  Company Number: US-PFIZER INC-2011097008

PATIENT
  Sex: Female

DRUGS (3)
  1. BONIVA [Concomitant]
     Dosage: UNK, MONTHLY
  2. LIPITOR [Suspect]
     Indication: HYPERLIPIDAEMIA
     Dosage: 10 MG, 1X/DAY
     Route: 048
     Dates: start: 20080410
  3. LIPITOR [Suspect]
     Dosage: 20 MG, 1X/DAY
     Route: 048
     Dates: start: 20100119

REACTIONS (1)
  - ALOPECIA [None]
